FAERS Safety Report 25450015 (Version 1)
Quarter: 2025Q2

REPORT INFORMATION
  Report Type: Report from Study
  Country: US (occurrence: US)
  Receive Date: 20250618
  Receipt Date: 20250618
  Transmission Date: 20250717
  Serious: Yes (Other)
  Sender: ACADIA PHARMACEUTICALS
  Company Number: US-ACADIA PHARMACEUTICALS INC.-ACA-2025-PIM-007068

PATIENT
  Sex: Male

DRUGS (12)
  1. NUPLAZID [Suspect]
     Active Substance: PIMAVANSERIN TARTRATE
     Indication: Parkinson^s disease
     Dosage: 10 MILLIGRAM, QD
     Route: 048
  2. NUPLAZID [Suspect]
     Active Substance: PIMAVANSERIN TARTRATE
     Indication: Hallucination
  3. NUPLAZID [Suspect]
     Active Substance: PIMAVANSERIN TARTRATE
     Indication: Delusion
  4. ASPIRIN [Concomitant]
     Active Substance: ASPIRIN
  5. MORPHINE SULFATE [Concomitant]
     Active Substance: MORPHINE SULFATE
  6. ATORVASTATIN [Concomitant]
     Active Substance: ATORVASTATIN
  7. CARBIDOPA\LEVODOPA [Concomitant]
     Active Substance: CARBIDOPA\LEVODOPA
  8. DONEPEZIL HYDROCHLORIDE [Concomitant]
     Active Substance: DONEPEZIL HYDROCHLORIDE
  9. ELIQUIS [Concomitant]
     Active Substance: APIXABAN
  10. GABAPENTIN [Concomitant]
     Active Substance: GABAPENTIN
  11. MIDODRINE HYDROCHLORIDE [Concomitant]
     Active Substance: MIDODRINE HYDROCHLORIDE
  12. VITAMIN D3 [Concomitant]
     Active Substance: CHOLECALCIFEROL

REACTIONS (5)
  - Delirium [Not Recovered/Not Resolved]
  - Device leakage [Unknown]
  - Urinary tract infection [Unknown]
  - Depression [Recovered/Resolved]
  - Confusional state [Not Recovered/Not Resolved]
